FAERS Safety Report 7938658-2 (Version None)
Quarter: 2011Q4

REPORT INFORMATION
  Report Type: 
  Country: None (occurrence: None)
  Receive Date: 20111123
  Receipt Date: 20111118
  Transmission Date: 20120403
  Serious: Yes (Death)
  Sender: FDA-Public Use
  Company Number: GB-MERCK-1111GBR00084

PATIENT
  Age: 51 Year
  Sex: Male
  Weight: 100 kg

DRUGS (14)
  1. PIPERACILLIN SODIUM [Suspect]
     Route: 051
     Dates: start: 20111004, end: 20111005
  2. MEROPENEM [Suspect]
     Indication: PYREXIA
     Route: 042
     Dates: start: 20110929, end: 20111004
  3. MEROPENEM [Suspect]
     Route: 042
     Dates: start: 20111006, end: 20111011
  4. VANCOMYCIN [Suspect]
     Indication: PYREXIA
     Route: 042
     Dates: start: 20110930, end: 20111003
  5. MEROPENEM [Suspect]
     Route: 042
     Dates: start: 20111005, end: 20111005
  6. DEFIBROTIDE [Suspect]
     Route: 042
     Dates: start: 20111005, end: 20111011
  7. CANCIDAS [Suspect]
     Route: 041
     Dates: start: 20111005, end: 20111011
  8. CYTARABINE [Suspect]
     Indication: ACUTE MYELOID LEUKAEMIA
     Route: 051
     Dates: start: 20110923, end: 20111003
  9. GEMTUZUMAB OZOGAMICIN [Suspect]
     Indication: ACUTE MYELOID LEUKAEMIA
     Route: 065
     Dates: start: 20110923, end: 20111003
  10. AMPHOTERICIN B [Suspect]
     Route: 042
     Dates: start: 20111005, end: 20111010
  11. ACETYLCYSTEINE [Suspect]
     Route: 042
     Dates: start: 20111005, end: 20111009
  12. CANCIDAS [Suspect]
     Indication: ANTIFUNGAL TREATMENT
     Route: 041
     Dates: start: 20111002, end: 20111004
  13. LINEZOLID [Suspect]
     Route: 042
     Dates: start: 20111003, end: 20111005
  14. DAUNORUBICIN HCL [Suspect]
     Indication: ACUTE MYELOID LEUKAEMIA
     Route: 065
     Dates: start: 20110923, end: 20111003

REACTIONS (1)
  - VENOOCCLUSIVE LIVER DISEASE [None]
